FAERS Safety Report 19008961 (Version 3)
Quarter: 2021Q1

REPORT INFORMATION
  Report Type: Spontaneous
  Country: HR (occurrence: HR)
  Receive Date: 20210315
  Receipt Date: 20210324
  Transmission Date: 20210420
  Serious: Yes (Other)
  Sender: FDA-Public Use
  Company Number: HR-PFIZER INC-2021240452

PATIENT
  Age: 48 Year
  Sex: Female

DRUGS (8)
  1. MEROPENEM. [Suspect]
     Active Substance: MEROPENEM
     Dosage: 1 G, 3X/DAY (1 G I.V. EVERY 8 HOURS)
     Route: 042
     Dates: start: 2015, end: 2015
  2. PIPERACILLIN/TAZOBACTAM [Suspect]
     Active Substance: PIPERACILLIN SODIUM\TAZOBACTAM SODIUM
     Indication: BACTERIAL INFECTION
     Dosage: 4.5 G, 3X/DAY
     Route: 042
     Dates: start: 201503, end: 2015
  3. VANCOMYCIN HCL [Suspect]
     Active Substance: VANCOMYCIN HYDROCHLORIDE
     Indication: BACTERIAL INFECTION
     Dosage: 1 G, 2X/DAY
     Route: 042
     Dates: start: 201503, end: 2015
  4. AMPHOTERICIN B. [Concomitant]
     Active Substance: AMPHOTERICIN B
     Indication: ANTIFUNGAL TREATMENT
     Dosage: UNK
     Dates: start: 201503
  5. MEROPENEM. [Suspect]
     Active Substance: MEROPENEM
     Indication: BACTERIAL INFECTION
     Dosage: 1 G, 3X/DAY
     Route: 042
     Dates: start: 201503, end: 2015
  6. VANCOMYCIN [Suspect]
     Active Substance: VANCOMYCIN
     Indication: BACTERIAL INFECTION
     Dosage: 2.5 ML, 4X/DAY
     Route: 048
     Dates: start: 2015, end: 2015
  7. IMIPENEM [Suspect]
     Active Substance: IMIPENEM
     Indication: BACTERIAL INFECTION
     Dosage: 1 G, 3X/DAY
     Route: 042
     Dates: start: 201503, end: 2015
  8. AMIKACIN. [Suspect]
     Active Substance: AMIKACIN
     Indication: BACTERIAL INFECTION
     Dosage: 500 MG, 2X/DAY
     Route: 042
     Dates: start: 201503, end: 2015

REACTIONS (1)
  - Enterococcal infection [Unknown]

NARRATIVE: CASE EVENT DATE: 201504
